FAERS Safety Report 19180191 (Version 1)
Quarter: 2021Q2

REPORT INFORMATION
  Report Type: Spontaneous
  Country: US (occurrence: US)
  Receive Date: 20210426
  Receipt Date: 20210426
  Transmission Date: 20210717
  Serious: No
  Sender: FDA-Public Use
  Company Number: US-ASTRAZENECA-2021A324271

PATIENT
  Sex: Female

DRUGS (1)
  1. FASENRA [Suspect]
     Active Substance: BENRALIZUMAB
     Dosage: EVERY MONTH FOR 3 DOSES, THEN EVERY 8 WEEKS THEREAFTER
     Route: 058

REACTIONS (2)
  - Product dose omission issue [Unknown]
  - COVID-19 [Unknown]
